FAERS Safety Report 7003487-3 (Version None)
Quarter: 2010Q3

REPORT INFORMATION
  Report Type: 
  Country: None (occurrence: None)
  Receive Date: 20100920
  Receipt Date: 20100913
  Transmission Date: 20110219
  Serious: Yes (Death)
  Sender: FDA-Public Use
  Company Number: JP-WYE-H17060110

PATIENT
  Age: 90 Year
  Sex: Female

DRUGS (1)
  1. ZOSYN [Suspect]
     Indication: URINARY TRACT INFECTION
     Route: 041
     Dates: start: 20100807, end: 20100810

REACTIONS (1)
  - TOXIC EPIDERMAL NECROLYSIS [None]
